FAERS Safety Report 22975654 (Version 5)
Quarter: 2023Q4

REPORT INFORMATION
  Report Type: Other
  Country: CZ (occurrence: CZ)
  Receive Date: 20230925
  Receipt Date: 20231029
  Transmission Date: 20240110
  Serious: Yes (Hospitalization, Other)
  Sender: FDA-Public Use
  Company Number: None

PATIENT
  Age: 17 Year
  Sex: Female

DRUGS (11)
  1. IBUPROFEN [Suspect]
     Active Substance: IBUPROFEN
     Indication: Suicide attempt
     Dosage: 100 TABLETS
     Route: 048
  2. METHYLPHENIDATE [Suspect]
     Active Substance: METHYLPHENIDATE
     Indication: Suicide attempt
     Dosage: 30 TABLETS
     Route: 048
  3. PROGESTERONE [Suspect]
     Active Substance: PROGESTERONE
     Indication: Suicide attempt
     Dosage: 15 TABLETS
     Route: 048
  4. PROGESTERONE [Suspect]
     Active Substance: PROGESTERONE
     Dosage: 30 TABLET
     Route: 048
  5. AMBROXOL HYDROCHLORIDE [Suspect]
     Active Substance: AMBROXOL HYDROCHLORIDE
     Indication: Suicide attempt
     Dosage: 10 TABLETS
     Route: 048
  6. METOPROLOL [Suspect]
     Active Substance: METOPROLOL
     Indication: Suicide attempt
     Dosage: 100 TABLETS
     Route: 048
  7. PROPIVERINE [Suspect]
     Active Substance: PROPIVERINE
     Indication: Suicide attempt
     Dosage: 14 TABLETS
     Route: 048
  8. DROTAVERINE HYDROCHLORIDE [Suspect]
     Active Substance: DROTAVERINE HYDROCHLORIDE
     Indication: Suicide attempt
     Dosage: 20 TABLETS
     Route: 048
  9. NORFLOXACIN [Suspect]
     Active Substance: NORFLOXACIN
     Indication: Suicide attempt
     Dosage: 20 TABLETS
     Route: 048
  10. LOPERAMIDE [Suspect]
     Active Substance: LOPERAMIDE
     Indication: Suicide attempt
     Dosage: 8 TABLETS
     Route: 048
  11. METAMIZOLE [Suspect]
     Active Substance: METAMIZOLE
     Indication: Suicide attempt
     Dosage: 10 TABLETS
     Route: 048

REACTIONS (10)
  - Dyslalia [Recovered/Resolved]
  - Mydriasis [Recovered/Resolved]
  - Confusional state [Recovered/Resolved]
  - Suicide attempt [None]
  - Metabolic acidosis [Recovered/Resolved]
  - Bradycardia [Recovered/Resolved]
  - Toxicity to various agents [None]
  - Intentional overdose [None]
  - Acidosis [Recovered/Resolved]
  - Off label use [Unknown]
